FAERS Safety Report 5410369-7 (Version None)
Quarter: 2007Q3

REPORT INFORMATION
  Report Type: 
  Country: None (occurrence: None)
  Receive Date: 20070808
  Receipt Date: 20070726
  Transmission Date: 20080115
  Serious: Yes (Other)
  Sender: FDA-Public Use
  Company Number: VNL_00702_2007

PATIENT
  Sex: Female

DRUGS (2)
  1. APO-GO (APO-GO - APOMORPHINE HYDROCHLORIDE) (NOT SPECIFIED) [Suspect]
     Indication: DRUG USE FOR UNKNOWN INDICATION
     Dosage: (6 MG PER HOUR FOR 24 HOURS/DAY; SUBCUTANEOUS
     Route: 058
  2. STALEVO 100 [Concomitant]

REACTIONS (2)
  - ANTINUCLEAR ANTIBODY POSITIVE [None]
  - HAEMOGLOBIN DECREASED [None]
